FAERS Safety Report 12119369 (Version 1)
Quarter: 2016Q1

REPORT INFORMATION
  Report Type: Spontaneous
  Country: US (occurrence: US)
  Receive Date: 20160226
  Receipt Date: 20160226
  Transmission Date: 20160526
  Serious: No
  Sender: FDA-Public Use
  Company Number: US-LUNDBECK-DKLU2010090

PATIENT
  Sex: Female

DRUGS (1)
  1. NORTHERA [Suspect]
     Active Substance: DROXIDOPA
     Indication: PRODUCT USED FOR UNKNOWN INDICATION
     Route: 065
     Dates: start: 20150820

REACTIONS (6)
  - Tinnitus [Unknown]
  - Hypophagia [Unknown]
  - Syncope [Unknown]
  - Headache [Unknown]
  - Viral infection [Unknown]
  - Fluid intake reduced [Unknown]
